FAERS Safety Report 10877440 (Version 2)
Quarter: 2016Q1

REPORT INFORMATION
  Report Type: Spontaneous
  Country: US (occurrence: US)
  Receive Date: 20150302
  Receipt Date: 20160324
  Transmission Date: 20160525
  Serious: Yes (Hospitalization, Other)
  Sender: FDA-Public Use
  Company Number: US-BAYER-2015-026212

PATIENT
  Age: 72 Year
  Sex: Female

DRUGS (4)
  1. METRONIDAZOLE. [Concomitant]
     Active Substance: METRONIDAZOLE
     Indication: COLITIS
  2. CIPROFLOXACIN. [Suspect]
     Active Substance: CIPROFLOXACIN
     Indication: COLITIS
     Dosage: 500 MG, BID
     Route: 048
  3. CIPROFLOXACIN. [Suspect]
     Active Substance: CIPROFLOXACIN
     Indication: COLITIS
     Dosage: 400 MG, BID
     Route: 042
  4. METRONIDAZOLE. [Concomitant]
     Active Substance: METRONIDAZOLE
     Indication: CLOSTRIDIUM DIFFICILE INFECTION

REACTIONS (5)
  - Crystal urine present [Recovered/Resolved]
  - Blood creatinine increased [Recovering/Resolving]
  - Acute kidney injury [Recovering/Resolving]
  - Renal tubular necrosis [None]
  - Oliguria [Recovering/Resolving]
